FAERS Safety Report 9356020 (Version 2)
Quarter: 2013Q3

REPORT INFORMATION
  Report Type: Report from Study
  Country: ES (occurrence: ES)
  Receive Date: 20130619
  Receipt Date: 20130715
  Transmission Date: 20140515
  Serious: Yes (Hospitalization)
  Sender: FDA-Public Use
  Company Number: ES-ELI_LILLY_AND_COMPANY-ES201306003287

PATIENT
  Age: 86 Year
  Sex: Female
  Weight: 54 kg

DRUGS (10)
  1. TERIPARATIDE [Suspect]
     Indication: OSTEOPOROSIS
     Dosage: 20 UG, QD
     Route: 058
     Dates: start: 20110923, end: 201304
  2. TERIPARATIDE [Suspect]
     Dosage: 20 UG, QD
     Route: 058
     Dates: start: 20130603
  3. TRAMADOL [Concomitant]
     Indication: PAIN
     Dosage: UNK, EVERY 8 HRS
     Route: 048
  4. FENTANYL                           /00174601/ [Concomitant]
     Indication: PAIN
     Dosage: 50 UG, OTHER
     Route: 062
  5. EUCREAS [Concomitant]
     Indication: DIABETES MELLITUS
     Dosage: 50 MG, QD
     Route: 048
  6. IDEOS [Concomitant]
     Indication: OSTEOPOROSIS
     Dosage: UNK, QD
     Route: 048
  7. HIDROFEROL [Concomitant]
     Indication: OSTEOPOROSIS
     Dosage: 1 UNK, UNK
     Route: 048
  8. MANIDIPINE [Concomitant]
     Indication: HYPERTENSION
     Dosage: 10 MG, QD
     Route: 048
  9. PANTOPRAZOL [Concomitant]
     Dosage: 20 MG, QD
     Route: 048
  10. PREDNISONE [Concomitant]
     Dosage: 5 MG, QD
     Route: 048

REACTIONS (7)
  - Pancreatitis [Recovered/Resolved]
  - Jaundice cholestatic [Recovered/Resolved]
  - Cholestasis [Recovered/Resolved]
  - Bile duct stone [Recovering/Resolving]
  - Cholangitis acute [Recovering/Resolving]
  - Pancreatitis acute [Recovering/Resolving]
  - Cholelithiasis [Recovered/Resolved]
